FAERS Safety Report 8512389 (Version 3)
Quarter: 2013Q4

REPORT INFORMATION
  Report Type: Spontaneous
  Country: US (occurrence: US)
  Receive Date: 20120413
  Receipt Date: 20131224
  Transmission Date: 20140711
  Serious: No
  Sender: FDA-Public Use
  Company Number: US-ASTRAZENECA-2012SE07753

PATIENT
  Age: 83 Year
  Sex: Female
  Weight: 99.3 kg

DRUGS (1)
  1. NEXIUM [Suspect]
     Indication: DYSPEPSIA
     Route: 048

REACTIONS (6)
  - Infection susceptibility increased [Unknown]
  - Arteriosclerosis [Unknown]
  - Activities of daily living impaired [Unknown]
  - Memory impairment [Unknown]
  - Drug dose omission [Unknown]
  - Intentional drug misuse [Unknown]
